FAERS Safety Report 15956941 (Version 1)
Quarter: 2019Q1

REPORT INFORMATION
  Report Type: Spontaneous
  Country: FR (occurrence: FR)
  Receive Date: 20190213
  Receipt Date: 20190213
  Transmission Date: 20190417
  Serious: Yes (Hospitalization)
  Sender: FDA-Public Use
  Company Number: FR-ALLERGAN-1905909US

PATIENT
  Age: 79 Year
  Sex: Female
  Weight: 76 kg

DRUGS (13)
  1. AMLOR [Concomitant]
     Active Substance: AMLODIPINE BESYLATE
  2. LANTUS [Concomitant]
     Active Substance: INSULIN GLARGINE
  3. NOVORAPID [Concomitant]
     Active Substance: INSULIN ASPART
  4. PARACETAMOL [Concomitant]
     Active Substance: ACETAMINOPHEN
  5. NEBIVOLOL HCL - BP [Suspect]
     Active Substance: NEBIVOLOL
     Indication: HYPERTENSION
     Dosage: 5 MG, QD
     Route: 048
  6. VALSARTAN. [Concomitant]
     Active Substance: VALSARTAN
  7. EZETROL [Concomitant]
     Active Substance: EZETIMIBE
  8. MOPRAL [Concomitant]
     Active Substance: OMEPRAZOLE
  9. FUROSEMIDE. [Concomitant]
     Active Substance: FUROSEMIDE
  10. ASPEGIC (ACETYLSALICYLATE LYSINE) [Concomitant]
     Active Substance: ASPIRIN DL-LYSINE
  11. TAHOR [Concomitant]
     Active Substance: ATORVASTATIN CALCIUM
  12. UVEDOSE [Concomitant]
     Active Substance: CHOLECALCIFEROL
  13. TARDYFERON [Concomitant]
     Active Substance: FERROUS SULFATE

REACTIONS (3)
  - Femur fracture [Recovered/Resolved with Sequelae]
  - Fall [Recovered/Resolved with Sequelae]
  - Bradycardia [Recovered/Resolved with Sequelae]

NARRATIVE: CASE EVENT DATE: 20161129
